FAERS Safety Report 9901847 (Version 3)
Quarter: 2014Q2

REPORT INFORMATION
  Report Type: Spontaneous
  Country: US (occurrence: US)
  Receive Date: 20140217
  Receipt Date: 20140421
  Transmission Date: 20141212
  Serious: Yes (Hospitalization)
  Sender: FDA-Public Use
  Company Number: US-GLAXOSMITHKLINE-A1060673A

PATIENT
  Age: 43 Year
  Sex: Female

DRUGS (13)
  1. TAFINLAR [Suspect]
     Indication: METASTATIC MALIGNANT MELANOMA
     Dosage: 200MG TWICE PER DAY
     Route: 048
     Dates: start: 201308
  2. MEKINIST [Suspect]
     Indication: MALIGNANT MELANOMA
     Dosage: 2MG PER DAY
     Route: 048
     Dates: start: 20130917
  3. CLARITIN [Concomitant]
  4. PSEUDOEPHEDRINE [Concomitant]
  5. BUPROPION [Concomitant]
  6. PRISTIQ [Concomitant]
  7. BISOPROLOL + HYDROCHLOROTHIAZIDE [Concomitant]
  8. LEVOTHYROXINE [Concomitant]
  9. STOOL SOFTENER [Concomitant]
  10. DAILY VITAMIN [Concomitant]
  11. CALCIUM WITH VITAMIN D [Concomitant]
  12. LORTAB [Concomitant]
  13. XGEVA [Concomitant]

REACTIONS (11)
  - Malignant neoplasm progression [Unknown]
  - Mass excision [Unknown]
  - Therapeutic embolisation [Unknown]
  - Procedural pain [Not Recovered/Not Resolved]
  - Rash [Unknown]
  - Pain in extremity [Unknown]
  - Skin exfoliation [Unknown]
  - Nausea [Unknown]
  - Vomiting [Unknown]
  - Urinary hesitation [Not Recovered/Not Resolved]
  - Micturition disorder [Not Recovered/Not Resolved]
